FAERS Safety Report 6592677-X (Version None)
Quarter: 2010Q1

REPORT INFORMATION
  Report Type: 
  Country: None (occurrence: None)
  Receive Date: 20100222
  Receipt Date: 20100211
  Transmission Date: 20100710
  Serious: Yes (Hospitalization)
  Sender: FDA-Public Use
  Company Number: US-BIOGENIDEC-2009BI041543

PATIENT
  Age: 60 Year
  Sex: Female
  Weight: 84 kg

DRUGS (7)
  1. AVONEX [Suspect]
     Indication: MULTIPLE SCLEROSIS
     Route: 030
     Dates: start: 20000901, end: 20030101
  2. AVONEX [Suspect]
     Route: 030
     Dates: start: 20030101
  3. SEROQUEL [Concomitant]
     Indication: PSYCHOTIC DISORDER
  4. GEODON [Concomitant]
     Indication: BIPOLAR DISORDER
  5. BUPROPION HCL [Concomitant]
  6. SERTRALINE [Concomitant]
  7. DEPAKOTE [Concomitant]

REACTIONS (12)
  - ARTHROPATHY [None]
  - BACK PAIN [None]
  - FACE INJURY [None]
  - FALL [None]
  - GAIT DISTURBANCE [None]
  - HEAD INJURY [None]
  - INCONTINENCE [None]
  - INSOMNIA [None]
  - MEMORY IMPAIRMENT [None]
  - PAIN IN EXTREMITY [None]
  - PSYCHOTIC DISORDER [None]
  - SWELLING FACE [None]
